FAERS Safety Report 21871413 (Version 1)
Quarter: 2023Q1

REPORT INFORMATION
  Report Type: Spontaneous
  Country: TR (occurrence: TR)
  Receive Date: 20230117
  Receipt Date: 20230117
  Transmission Date: 20230418
  Serious: Yes (Hospitalization, Other)
  Sender: FDA-Public Use
  Company Number: TR-SA-2023SA011603

PATIENT
  Age: 34 Year
  Sex: Female

DRUGS (3)
  1. ENOXAPARIN SODIUM [Suspect]
     Active Substance: ENOXAPARIN SODIUM
     Indication: Mitral valve replacement
     Dosage: 0.8 ML
     Dates: start: 2019, end: 2019
  2. WARFARIN SODIUM [Suspect]
     Active Substance: WARFARIN SODIUM
     Indication: Mitral valve replacement
     Dosage: UNK
     Dates: end: 2019
  3. HEPARIN [Suspect]
     Active Substance: HEPARIN SODIUM
     Indication: Mitral valve replacement
     Route: 041

REACTIONS (8)
  - Cerebral ischaemia [Unknown]
  - Cerebrovascular accident [Unknown]
  - Intracardiac thrombus [Unknown]
  - Mitral valve disease [Unknown]
  - General physical health deterioration [Unknown]
  - Exposure during pregnancy [Unknown]
  - Haemorrhage intracranial [Unknown]
  - Subarachnoid haemorrhage [Unknown]

NARRATIVE: CASE EVENT DATE: 20190101
